FAERS Safety Report 8297247-3 (Version None)
Quarter: 2012Q2

REPORT INFORMATION
  Report Type: 
  Country: None (occurrence: None)
  Receive Date: 20120416
  Receipt Date: 20120406
  Transmission Date: 20120825
  Serious: Yes (Disabling)
  Sender: FDA-Public Use
  Company Number: 2012SP018713

PATIENT
  Age: 68 Year
  Sex: Male
  Weight: 61 kg

DRUGS (8)
  1. TELAVIC (ANTIVIRALS NOS) [Suspect]
     Indication: HEPATITIS C
     Dosage: 2250 MG;QD;PO
     Route: 048
     Dates: start: 20120202
  2. ACTOS [Concomitant]
  3. REBETOL [Suspect]
     Indication: HEPATITIS C
     Dosage: 800 MG;QD;PO 600 MG;QD;PO
     Route: 048
     Dates: start: 20120301
  4. REBETOL [Suspect]
     Indication: HEPATITIS C
     Dosage: 800 MG;QD;PO 600 MG;QD;PO
     Route: 048
     Dates: start: 20120202, end: 20120229
  5. GLYBURIDE [Concomitant]
  6. PEG-INTRON [Suspect]
     Indication: HEPATITIS C
     Dosage: 1.5 MCG/KG;QW;SC
     Route: 058
  7. VOLTAREN [Concomitant]
  8. EPADEL-S [Concomitant]

REACTIONS (6)
  - HAEMOGLOBIN DECREASED [None]
  - HEARING IMPAIRED [None]
  - CONTUSION [None]
  - SKULL FRACTURED BASE [None]
  - EAR HAEMORRHAGE [None]
  - FALL [None]
